FAERS Safety Report 5236963-4 (Version None)
Quarter: 2007Q1

REPORT INFORMATION
  Report Type: 
  Country: None (occurrence: None)
  Receive Date: 20070213
  Receipt Date: 20070130
  Transmission Date: 20070707
  Serious: Yes (Other)
  Sender: FDA-Public Use
  Company Number: PHEH2007US01498

PATIENT
  Age: 41 Year
  Sex: Female

DRUGS (2)
  1. MAGNESIUM OXIDE [Suspect]
     Indication: CONSTIPATION
     Dosage: 250 MG, QD
     Dates: start: 20040101, end: 20060901
  2. ZELNORM [Suspect]
     Indication: CONSTIPATION
     Dosage: 6 MG, QD
     Route: 048
     Dates: start: 20040101, end: 20060901

REACTIONS (2)
  - COLITIS [None]
  - DIARRHOEA [None]
